FAERS Safety Report 11213138 (Version 1)
Quarter: 2015Q2

REPORT INFORMATION
  Report Type: Spontaneous
  Country: GB (occurrence: GB)
  Receive Date: 20150623
  Receipt Date: 20150623
  Transmission Date: 20150821
  Serious: Yes (Hospitalization, Other)
  Sender: FDA-Public Use
  Company Number: PHHY2015GB071498

PATIENT
  Age: 15 Year
  Sex: Male
  Weight: 54.8 kg

DRUGS (2)
  1. SOMATROPIN [Suspect]
     Active Substance: SOMATROPIN
     Indication: DELAYED PUBERTY
     Dosage: 1.8 MG
     Route: 058
     Dates: start: 201304, end: 20150116
  2. SOMATROPIN [Suspect]
     Active Substance: SOMATROPIN
     Dosage: 1.4 MG
     Route: 058
     Dates: start: 20120206, end: 201304

REACTIONS (3)
  - Proteinuria [Unknown]
  - Essential hypertension [Recovering/Resolving]
  - Headache [Recovered/Resolved]

NARRATIVE: CASE EVENT DATE: 201404
